FAERS Safety Report 5848852-2 (Version None)
Quarter: 2008Q3

REPORT INFORMATION
  Report Type: 
  Country: None (occurrence: None)
  Receive Date: 20080818
  Receipt Date: 20080806
  Transmission Date: 20090109
  Serious: Yes (Other)
  Sender: FDA-Public Use
  Company Number: GB-PFIZER INC-2008053296

PATIENT
  Age: 20 Year
  Sex: Female

DRUGS (5)
  1. LATANOPROST [Suspect]
     Indication: GLAUCOMA
     Route: 047
  2. TIMOLOL MALEATE [Suspect]
     Indication: INTRAOCULAR PRESSURE INCREASED
     Route: 047
  3. TIMOLOL MALEATE [Suspect]
     Indication: GLAUCOMA
  4. BRIMONIDINE [Suspect]
     Indication: GLAUCOMA
     Route: 047
  5. INSULIN [Concomitant]

REACTIONS (3)
  - DRUG INEFFECTIVE [None]
  - IRIS ADHESIONS [None]
  - VITREOUS HAEMORRHAGE [None]
